FAERS Safety Report 9167706 (Version 1)
Quarter: 2013Q1

REPORT INFORMATION
  Report Type: Spontaneous
  Country: US (occurrence: US)
  Receive Date: 20130318
  Receipt Date: 20130318
  Transmission Date: 20140127
  Serious: No
  Sender: FDA-Public Use
  Company Number: US-BAYER-2013-020298

PATIENT
  Age: 84 Year
  Sex: Male

DRUGS (21)
  1. CIPRO [Suspect]
  2. TRAMADOL [Concomitant]
     Indication: PAIN
     Dosage: 2 DF, PRN
  3. ZOLPIDEM [Concomitant]
     Dosage: 1 DF, HS
  4. TOPROL [Concomitant]
     Indication: BLOOD PRESSURE ABNORMAL
     Dosage: 1 DF, QD
     Dates: start: 20110226
  5. OMEPRAZOLE [Concomitant]
     Dosage: 2 DF, QD
  6. XALATAN [Concomitant]
     Indication: GLAUCOMA
     Dosage: 1 DF, HS
  7. FLUNISOLIDE [Concomitant]
     Dosage: 25 MCG 200 D
  8. TERAZOSIN [Concomitant]
     Indication: URINARY INCONTINENCE
     Dosage: 1 DF, HS
  9. ROSUVASTATIN [Concomitant]
     Indication: BLOOD CHOLESTEROL ABNORMAL
     Dosage: 1 DF, QD
  10. FORADIL [Concomitant]
     Dosage: 1 DF, BID
  11. ALBUTEROL [Concomitant]
     Dosage: 2 DF, QID
  12. ATROVENT [Concomitant]
     Dosage: 2 DF, QD
  13. X-VIATE [Concomitant]
     Indication: TINEA PEDIS
  14. OXYGEN [Concomitant]
     Dosage: 2 L, UNK
     Dates: start: 20091027
  15. FERROUS SULFATE [Concomitant]
     Indication: BLOOD IRON DECREASED
     Dosage: 1 DF, QD
  16. VITAMINS WITH MINERALS [Concomitant]
  17. MAGNESIUM MALATE [Concomitant]
  18. OMEGA 3 FISH OIL [Concomitant]
  19. B12 [Concomitant]
  20. NIACIN [Concomitant]
  21. VITAMIN E [Concomitant]

REACTIONS (1)
  - Urticaria [None]
